FAERS Safety Report 20140792 (Version 1)
Quarter: 2021Q4

REPORT INFORMATION
  Report Type: Spontaneous
  Country: BR (occurrence: BR)
  Receive Date: 20211202
  Receipt Date: 20211202
  Transmission Date: 20220303
  Serious: Yes (Other)
  Sender: FDA-Public Use
  Company Number: BR-NOVARTISPH-NVSC2020BR250412

PATIENT
  Sex: Female
  Weight: 75 kg

DRUGS (3)
  1. TIMOLOL MALEATE\TRAVOPROST [Suspect]
     Active Substance: TIMOLOL MALEATE\TRAVOPROST
     Indication: Glaucoma
     Dosage: 1 DRP, BID (EACH EYE)
     Route: 047
     Dates: end: 202007
  2. BRIMONIDINE TARTRATE [Suspect]
     Active Substance: BRIMONIDINE TARTRATE
     Indication: Glaucoma
     Dosage: 1 DRP, QD (IN EACH EYE, DAILY AT NIGHT)
     Route: 047
  3. LATANOPROST / TIMOLOL [Concomitant]
     Indication: Glaucoma
     Dosage: 1 DRP, QD (LEFT EYE, AT NIGHT)
     Route: 065

REACTIONS (8)
  - Thrombosis [Recovering/Resolving]
  - Retinal oedema [Not Recovered/Not Resolved]
  - Cataract [Recovering/Resolving]
  - Intraocular pressure increased [Not Recovered/Not Resolved]
  - Post procedural oedema [Not Recovered/Not Resolved]
  - Hypersensitivity [Recovered/Resolved]
  - Eye pruritus [Recovered/Resolved]
  - Product availability issue [Unknown]
